FAERS Safety Report 16125904 (Version 1)
Quarter: 2019Q1

REPORT INFORMATION
  Report Type: Other
  Country: CH (occurrence: CH)
  Receive Date: 20190328
  Receipt Date: 20190328
  Transmission Date: 20190418
  Serious: Yes (Death, Hospitalization)
  Sender: FDA-Public Use
  Company Number: CH-DEXPHARM-20190217

PATIENT
  Age: 90 Year
  Sex: Female

DRUGS (6)
  1. LACOSAMIDE. [Suspect]
     Active Substance: LACOSAMIDE
     Indication: SEIZURE
  2. LEVETIRACETAM. [Suspect]
     Active Substance: LEVETIRACETAM
     Indication: SEIZURE
  3. VALPORIC ACID [Suspect]
     Active Substance: VALPROIC ACID
     Indication: SEIZURE
  4. METHYLPREDNISOLONE. [Suspect]
     Active Substance: METHYLPREDNISOLONE
     Indication: SEIZURE
     Dosage: 800 MG/DAY FOR 3 DAYS
     Route: 041
  5. PREGABALIN. [Suspect]
     Active Substance: PREGABALIN
     Indication: SEIZURE
  6. CLONAZEPAM. [Suspect]
     Active Substance: CLONAZEPAM
     Indication: SEIZURE

REACTIONS (1)
  - Drug ineffective [Fatal]
